FAERS Safety Report 14985011 (Version 1)
Quarter: 2018Q2

REPORT INFORMATION
  Report Type: Spontaneous
  Country: US (occurrence: US)
  Receive Date: 20180607
  Receipt Date: 20180607
  Transmission Date: 20180711
  Serious: No
  Sender: FDA-Public Use
  Company Number: US-PFIZER INC-2018205760

PATIENT
  Age: 63 Year
  Sex: Male
  Weight: 112 kg

DRUGS (7)
  1. LETROZOLE. [Concomitant]
     Active Substance: LETROZOLE
     Indication: BREAST CANCER
     Dosage: 25 MG, 1X/DAY (25MG 1 TABLET BY MOUTH ONCE A DAY)
     Route: 048
     Dates: start: 201612
  2. IBRANCE [Suspect]
     Active Substance: PALBOCICLIB
     Indication: BREAST CANCER MALE
     Dosage: 125 MG, 1X/DAY (125 MG 1 CAPSULE BY MOUTH ONCE A DAY)
     Route: 048
     Dates: start: 201612, end: 201805
  3. METOPROLOL TARTRATE. [Concomitant]
     Active Substance: METOPROLOL TARTRATE
     Indication: BLOOD PRESSURE MEASUREMENT
     Dosage: 50 MG, 2X/DAY (50MG 1 TABLET BY MOUTH TWICE A DAY)
     Route: 048
  4. ASPIRIN. [Concomitant]
     Active Substance: ASPIRIN
     Indication: CARDIAC DISORDER
     Dosage: 81 MG, 1X/DAY (81MG 1 TABLET BY MOUTH ONCE A DAY)
     Route: 048
  5. ROSUVASTATIN CALCIUM. [Concomitant]
     Active Substance: ROSUVASTATIN CALCIUM
     Indication: BLOOD CHOLESTEROL INCREASED
     Dosage: 10 MG, ALTERNATE DAY (10MG 1 TABLET BY MOUTH EVERY OTHER DAY)
     Route: 048
     Dates: start: 2017
  6. CLOPIDOGREL [Concomitant]
     Active Substance: CLOPIDOGREL BISULFATE
     Indication: CARDIAC DISORDER
     Dosage: 75 MG, 1X/DAY (75MG 1 TABLET BY MOUTH ONCE A DAY)
     Route: 048
  7. LISINOPRIL. [Concomitant]
     Active Substance: LISINOPRIL
     Indication: BLOOD PRESSURE ABNORMAL
     Dosage: 10 MG, 1X/DAY (10MG 1 TABLET BY MOUTH ONCE DAILY)
     Route: 048

REACTIONS (3)
  - Product use issue [Unknown]
  - Red blood cell count decreased [Unknown]
  - White blood cell count decreased [Unknown]

NARRATIVE: CASE EVENT DATE: 201612
